FAERS Safety Report 25343796 (Version 1)
Quarter: 2025Q2

REPORT INFORMATION
  Report Type: Spontaneous
  Country: IL (occurrence: IL)
  Receive Date: 20250521
  Receipt Date: 20250521
  Transmission Date: 20250717
  Serious: Yes (Death, Hospitalization)
  Sender: ELI LILLY AND COMPANY
  Company Number: IL-ELI_LILLY_AND_COMPANY-IL202505015265

PATIENT
  Age: 68 Year
  Sex: Male

DRUGS (1)
  1. JAYPIRCA [Suspect]
     Active Substance: PIRTOBRUTINIB
     Indication: Mantle cell lymphoma
     Dosage: 200 MG, DAILY
     Route: 065

REACTIONS (1)
  - Septic shock [Fatal]
